FAERS Safety Report 16208111 (Version 2)
Quarter: 2019Q2

REPORT INFORMATION
  Report Type: Spontaneous
  Country: CN (occurrence: CN)
  Receive Date: 20190417
  Receipt Date: 20190429
  Transmission Date: 20190711
  Serious: Yes (Death, Other)
  Sender: FDA-Public Use
  Company Number: CN-BAYER-2019-076744

PATIENT
  Age: 80 Year
  Sex: Male

DRUGS (1)
  1. NEXAVAR [Suspect]
     Active Substance: SORAFENIB
     Indication: HEPATIC CANCER
     Dosage: 0.2 G, QD
     Route: 048
     Dates: start: 20190318, end: 20190327

REACTIONS (5)
  - Rash [None]
  - Death [Fatal]
  - Off label use [None]
  - Hyperpyrexia [Recovered/Resolved]
  - Lung infection [None]

NARRATIVE: CASE EVENT DATE: 20190318
